FAERS Safety Report 5934296-1 (Version None)
Quarter: 2008Q4

REPORT INFORMATION
  Report Type: 
  Country: None (occurrence: None)
  Receive Date: 20081029
  Receipt Date: 20081017
  Transmission Date: 20090506
  Serious: Yes (Other)
  Sender: FDA-Public Use
  Company Number: PHHY2008GB25663

PATIENT

DRUGS (2)
  1. DIOVAN [Suspect]
     Dosage: 40 MG, QD
  2. DIOVAN [Suspect]
     Dosage: 80 MG, QD

REACTIONS (2)
  - DYSPHAGIA [None]
  - JAW OPERATION [None]
